FAERS Safety Report 8449692-0 (Version None)
Quarter: 2012Q2

REPORT INFORMATION
  Report Type: 
  Country: None (occurrence: None)
  Receive Date: 20120605
  Receipt Date: 20120601
  Transmission Date: 20120825
  Serious: Yes (Other)
  Sender: FDA-Public Use
  Company Number: 2011030275

PATIENT
  Sex: Male

DRUGS (31)
  1. HIZENTRA [Suspect]
     Indication: BLOOD IMMUNOGLOBULIN G DECREASED
     Dosage: SUBCUTANEOUS
     Route: 058
     Dates: start: 20120216
  2. HIZENTRA [Suspect]
     Indication: B-CELL LYMPHOMA
     Dosage: SUBCUTANEOUS
     Route: 058
     Dates: start: 20120216
  3. AVELOX [Concomitant]
  4. HIZENTRA [Suspect]
     Indication: B-CELL LYMPHOMA
     Dosage: (75 ML 1X/WEEK SUBCUTANEOUS)
     Route: 058
     Dates: start: 20111019
  5. HIZENTRA [Suspect]
     Indication: BLOOD IMMUNOGLOBULIN G DECREASED
     Dosage: (75 ML 1X/WEEK SUBCUTANEOUS)
     Route: 058
     Dates: start: 20111019
  6. HIZENTRA [Suspect]
     Indication: B-CELL LYMPHOMA
     Dosage: SUBCUTANEOUS
     Route: 058
  7. HIZENTRA [Suspect]
     Indication: BLOOD IMMUNOGLOBULIN G DECREASED
     Dosage: SUBCUTANEOUS
     Route: 058
  8. HIZENTRA [Suspect]
     Indication: B-CELL LYMPHOMA
     Dosage: SUBCUTANEOUS
     Route: 058
     Dates: start: 20120315, end: 20120315
  9. HIZENTRA [Suspect]
     Indication: BLOOD IMMUNOGLOBULIN G DECREASED
     Dosage: SUBCUTANEOUS
     Route: 058
     Dates: start: 20120315, end: 20120315
  10. SYNTHROID [Concomitant]
  11. HIZENTRA [Suspect]
     Indication: B-CELL LYMPHOMA
     Dosage: SUBCUTANEOUS
     Route: 057
     Dates: start: 20120105
  12. HIZENTRA [Suspect]
     Indication: BLOOD IMMUNOGLOBULIN G DECREASED
     Dosage: SUBCUTANEOUS
     Route: 057
     Dates: start: 20120105
  13. HIZENTRA [Suspect]
     Indication: B-CELL LYMPHOMA
     Dosage: SUBCUTANEOUS
     Route: 058
     Dates: start: 20120209
  14. HIZENTRA [Suspect]
     Indication: BLOOD IMMUNOGLOBULIN G DECREASED
     Dosage: SUBCUTANEOUS
     Route: 058
     Dates: start: 20120209
  15. HIZENTRA [Suspect]
     Indication: BLOOD IMMUNOGLOBULIN G DECREASED
  16. HIZENTRA [Suspect]
     Indication: B-CELL LYMPHOMA
  17. HIZENTRA [Suspect]
     Indication: BLOOD IMMUNOGLOBULIN G DECREASED
     Dosage: SUBCUTANEOUS
     Route: 058
     Dates: end: 20120315
  18. HIZENTRA [Suspect]
     Indication: B-CELL LYMPHOMA
     Dosage: SUBCUTANEOUS
     Route: 058
     Dates: end: 20120315
  19. VITAMIN B12 [Concomitant]
  20. HIZENTRA [Suspect]
     Indication: B-CELL LYMPHOMA
     Dosage: SUBCUTANEOUS
     Route: 058
     Dates: start: 20120105
  21. HIZENTRA [Suspect]
     Indication: BLOOD IMMUNOGLOBULIN G DECREASED
     Dosage: SUBCUTANEOUS
     Route: 058
     Dates: start: 20120105
  22. TAZTIA (DILTIAZEM HYDROCHLORIDE) [Concomitant]
  23. VITAMIN D [Concomitant]
  24. VITAMIN B6 [Concomitant]
  25. HIZENTRA [Suspect]
     Indication: BLOOD IMMUNOGLOBULIN G DECREASED
     Dosage: SUBCUTANEOUS
     Route: 058
     Dates: start: 20111025
  26. HIZENTRA [Suspect]
     Indication: B-CELL LYMPHOMA
     Dosage: SUBCUTANEOUS
     Route: 058
     Dates: start: 20111025
  27. HIZENTRA [Suspect]
     Indication: BLOOD IMMUNOGLOBULIN G DECREASED
     Dosage: SUBCUTANEOUS
     Route: 058
     Dates: start: 20120202
  28. HIZENTRA [Suspect]
     Indication: B-CELL LYMPHOMA
     Dosage: SUBCUTANEOUS
     Route: 058
     Dates: start: 20120202
  29. HIZENTRA [Suspect]
     Indication: BLOOD IMMUNOGLOBULIN G DECREASED
     Dosage: SUBCUTANEOUS
     Route: 058
     Dates: start: 20120224
  30. HIZENTRA [Suspect]
     Indication: B-CELL LYMPHOMA
     Dosage: SUBCUTANEOUS
     Route: 058
     Dates: start: 20120224
  31. FISH OIL [Concomitant]

REACTIONS (17)
  - RASH ERYTHEMATOUS [None]
  - FLUSHING [None]
  - DECREASED APPETITE [None]
  - FEELING ABNORMAL [None]
  - INFUSION SITE ERYTHEMA [None]
  - SWELLING [None]
  - COUGH [None]
  - CHILLS [None]
  - FEELING COLD [None]
  - INFUSION RELATED REACTION [None]
  - DRY SKIN [None]
  - LETHARGY [None]
  - BLOOD PRESSURE DECREASED [None]
  - BLISTER [None]
  - ASTHENIA [None]
  - NAUSEA [None]
  - BODY TEMPERATURE INCREASED [None]
